FAERS Safety Report 7297802-3 (Version None)
Quarter: 2011Q1

REPORT INFORMATION
  Report Type: 
  Country: None (occurrence: None)
  Receive Date: 20110207
  Receipt Date: 20110128
  Transmission Date: 20110831
  Serious: Yes (Hospitalization)
  Sender: FDA-Public Use
  Company Number: JPI-P-013679

PATIENT
  Age: 62 Year
  Sex: Female
  Weight: 39.9165 kg

DRUGS (9)
  1. OXYCODONE HCL AND ACETAMINOPHEN [Concomitant]
  2. LYSINE [Concomitant]
  3. XYREM [Suspect]
     Indication: INSOMNIA
     Dosage: (9 GM (4.5 GM, 2 IN 1 D), ORAL) (12 GM (6 GM, 2 IN 1 D), ORAL) (6 GM (3 GM, 2 IN 2 D), ORAL) (12 GM
     Route: 048
     Dates: start: 20051108, end: 20070101
  4. XYREM [Suspect]
     Indication: INSOMNIA
     Dosage: (9 GM (4.5 GM, 2 IN 1 D), ORAL) (12 GM (6 GM, 2 IN 1 D), ORAL) (6 GM (3 GM, 2 IN 2 D), ORAL) (12 GM
     Route: 048
     Dates: start: 20110107
  5. XYREM [Suspect]
     Indication: INSOMNIA
     Dosage: (9 GM (4.5 GM, 2 IN 1 D), ORAL) (12 GM (6 GM, 2 IN 1 D), ORAL) (6 GM (3 GM, 2 IN 2 D), ORAL) (12 GM
     Route: 048
     Dates: start: 20050314
  6. XYREM [Suspect]
     Indication: INSOMNIA
     Dosage: (9 GM (4.5 GM, 2 IN 1 D), ORAL) (12 GM (6 GM, 2 IN 1 D), ORAL) (6 GM (3 GM, 2 IN 2 D), ORAL) (12 GM
     Route: 048
     Dates: start: 20100629
  7. ALPRAZOLAM [Suspect]
     Indication: ANXIETY
     Dosage: 6 MG (2 MG, 3 IN 1 D)
  8. PSEUDOEPHEDRINE HCL [Concomitant]
  9. METOPROLOL SUCCINATE [Concomitant]

REACTIONS (6)
  - CONVULSION [None]
  - IMPATIENCE [None]
  - IRRITABILITY [None]
  - MOOD ALTERED [None]
  - DRUG DOSE OMISSION [None]
  - TREATMENT NONCOMPLIANCE [None]
